APPROVED DRUG PRODUCT: CARBIDOPA AND LEVODOPA
Active Ingredient: CARBIDOPA; LEVODOPA
Strength: 25MG;250MG
Dosage Form/Route: TABLET;ORAL
Application: A077120 | Product #003
Applicant: APOTEX INC
Approved: Jun 2, 2008 | RLD: No | RS: No | Type: DISCN